FAERS Safety Report 10391083 (Version 2)
Quarter: 2015Q4

REPORT INFORMATION
  Report Type: Spontaneous
  Country: US (occurrence: US)
  Receive Date: 20140818
  Receipt Date: 20151120
  Transmission Date: 20160304
  Serious: Yes (Other)
  Sender: FDA-Public Use
  Company Number: US-VIIV HEALTHCARE LIMITED-A1084576A

PATIENT
  Sex: Male

DRUGS (7)
  1. COMBIVIR [Suspect]
     Active Substance: LAMIVUDINE\ZIDOVUDINE
     Indication: SURGERY
     Dosage: 150-300 MG, 1 TABLET DAILY
     Route: 048
     Dates: start: 2001
  2. TRICOR [Concomitant]
     Active Substance: FENOFIBRATE
  3. SUSTIVA [Concomitant]
     Active Substance: EFAVIRENZ
  4. COMBIVIR [Suspect]
     Active Substance: LAMIVUDINE\ZIDOVUDINE
     Indication: PNEUMONIA
     Dosage: UNK, UNK
  5. COMBIVIR [Suspect]
     Active Substance: LAMIVUDINE\ZIDOVUDINE
     Indication: HIV INFECTION
  6. COMBIVIR [Suspect]
     Active Substance: LAMIVUDINE\ZIDOVUDINE
     Indication: INFECTION
  7. IBUPROFEN. [Concomitant]
     Active Substance: IBUPROFEN

REACTIONS (5)
  - Off label use [Unknown]
  - Nephrolithiasis [Recovered/Resolved]
  - Visual acuity reduced [Unknown]
  - Glaucoma [Not Recovered/Not Resolved]
  - Cataract [Unknown]

NARRATIVE: CASE EVENT DATE: 2012
